FAERS Safety Report 7365410-1 (Version None)
Quarter: 2011Q1

REPORT INFORMATION
  Report Type: 
  Country: None (occurrence: None)
  Receive Date: 20110322
  Receipt Date: 20100804
  Transmission Date: 20110831
  Serious: Yes (Other)
  Sender: FDA-Public Use
  Company Number: PHEH2007US04266

PATIENT
  Sex: Female

DRUGS (18)
  1. ATIVAN [Concomitant]
  2. VALIUM [Concomitant]
  3. COUMADIN [Concomitant]
     Dosage: 5 MG, QD
  4. NAVELBINE [Concomitant]
     Dosage: UNK
  5. AMBIEN [Concomitant]
     Dosage: UNK
  6. CARBOPLATIN [Concomitant]
     Dosage: UNK
  7. GEMZAR [Concomitant]
  8. NEUPOGEN [Concomitant]
  9. COMPAZINE [Concomitant]
     Dosage: UNK
  10. LOVENOX [Concomitant]
     Dosage: UNK
  11. BUSPAR [Concomitant]
     Dosage: 20 MG, QD
  12. AROMASIN [Concomitant]
  13. ZYRTEC [Concomitant]
     Dosage: UNK
  14. VICODIN [Concomitant]
     Dosage: UNK
  15. LASIX [Concomitant]
  16. ZOMETA [Suspect]
     Indication: METASTASES TO BONE
     Dosage: UNK
  17. HERCEPTIN [Concomitant]
  18. LANOXIN [Concomitant]

REACTIONS (1)
  - OSTEONECROSIS OF JAW [None]
